FAERS Safety Report 4647683-9 (Version None)
Quarter: 2005Q2

REPORT INFORMATION
  Report Type: 
  Country: None (occurrence: None)
  Receive Date: 20050426
  Receipt Date: 20050413
  Transmission Date: 20051028
  Serious: Yes (Other)
  Sender: FDA-Public Use
  Company Number: HQWYE052415APR05

PATIENT
  Age: 18 Year
  Sex: Female

DRUGS (1)
  1. ALAVERT [Suspect]
     Indication: DRUG ABUSER
     Dosage: 8 TABS AT ONCE
     Dates: start: 20050101

REACTIONS (5)
  - ACCIDENTAL OVERDOSE [None]
  - DRUG ABUSER [None]
  - EUPHORIC MOOD [None]
  - INTENTIONAL MISUSE [None]
  - OVERDOSE [None]
